FAERS Safety Report 6324546 (Version 2)
Quarter: 2020Q3

REPORT INFORMATION
  Report Type: Spontaneous
  Country: DE (occurrence: DE)
  Receive Date: 20070601
  Receipt Date: 20070615
  Transmission Date: 20201105
  Serious: Yes (Hospitalization)
  Sender: FDA-Public Use
  Company Number: DE-ROCHE-499372

PATIENT
  Age: 67 Year
  Sex: Female
  Weight: 110 kg

DRUGS (6)
  1. MELPHALAN. [Concomitant]
     Active Substance: MELPHALAN
     Dates: start: 199803
  2. UNSPECIFIED INGREDIENT [Concomitant]
     Active Substance: UNSPECIFIED INGREDIENT
     Dosage: GENERIC REPORTED AS : VINCRISTIN/DOXORUBICIN/DEXAMETHASONE
     Dates: start: 200603
  3. IBANDRONIC ACID. [Suspect]
     Active Substance: IBANDRONIC ACID
     Indication: PLASMACYTOMA
     Dosage: THERAPY STOPPED IN APRIL 2007.
     Route: 042
     Dates: start: 20070417
  4. AREDIA [Suspect]
     Active Substance: PAMIDRONATE DISODIUM
     Indication: PLASMACYTOMA
     Route: 042
     Dates: start: 199803, end: 200703
  5. INTERFERON NOS [Concomitant]
     Active Substance: INTERFERON
     Dates: start: 199905, end: 199906
  6. PREDNISOLONE. [Concomitant]
     Active Substance: PREDNISOLONE
     Dates: start: 199803

REACTIONS (2)
  - Osteomyelitis [Not Recovered/Not Resolved]
  - Abscess [Not Recovered/Not Resolved]

NARRATIVE: CASE EVENT DATE: 20070301
